FAERS Safety Report 22537346 (Version 1)
Quarter: 2023Q2

REPORT INFORMATION
  Report Type: Report from Study
  Country: AU (occurrence: None)
  Receive Date: 20230608
  Receipt Date: 20230608
  Transmission Date: 20230722
  Serious: Yes (Death)
  Sender: FDA-Public Use
  Company Number: 2023A130820

PATIENT
  Age: 34 Year
  Sex: Female

DRUGS (7)
  1. QUETIAPINE [Suspect]
     Active Substance: QUETIAPINE
     Route: 048
  2. DULOXETINE [Suspect]
     Active Substance: DULOXETINE
  3. DIAZEPAM [Suspect]
     Active Substance: DIAZEPAM
  4. AMITRIPTYLINE [Suspect]
     Active Substance: AMITRIPTYLINE
  5. CODEINE [Suspect]
     Active Substance: CODEINE
  6. OXYCODONE [Suspect]
     Active Substance: OXYCODONE
  7. METOCLOPRAMIDE [Suspect]
     Active Substance: METOCLOPRAMIDE

REACTIONS (5)
  - Myocardial ischaemia [Fatal]
  - Arteriosclerosis coronary artery [Fatal]
  - Coronary artery stenosis [Fatal]
  - Coronary artery stenosis [Fatal]
  - Pleural effusion [Fatal]
